FAERS Safety Report 8789100 (Version 4)
Quarter: 2013Q4

REPORT INFORMATION
  Report Type: Spontaneous
  Country: FR (occurrence: FR)
  Receive Date: 20120917
  Receipt Date: 20131211
  Transmission Date: 20140711
  Serious: Yes (Hospitalization)
  Sender: FDA-Public Use
  Company Number: FR-BIOGENIDEC-2012BI036626

PATIENT
  Age: 53 Year
  Sex: Female

DRUGS (3)
  1. TYSABRI [Suspect]
     Indication: MULTIPLE SCLEROSIS
     Route: 042
     Dates: start: 200806, end: 201206
  2. STEROIDS [Concomitant]
     Indication: MULTIPLE SCLEROSIS
     Route: 042
     Dates: start: 201207, end: 201207
  3. STEROIDS [Concomitant]
     Indication: MULTIPLE SCLEROSIS
     Route: 042
     Dates: start: 201208, end: 201208

REACTIONS (1)
  - Progressive multifocal leukoencephalopathy [Not Recovered/Not Resolved]
